FAERS Safety Report 15132143 (Version 2)
Quarter: 2018Q3

REPORT INFORMATION
  Report Type: Spontaneous
  Country: US (occurrence: US)
  Receive Date: 20180711
  Receipt Date: 20180720
  Transmission Date: 20181010
  Serious: No
  Sender: FDA-Public Use
  Company Number: US-GALDERMA-US18004507

PATIENT
  Age: 28 Year
  Sex: Female

DRUGS (6)
  1. MOISTURIZER [Concomitant]
     Active Substance: UNSPECIFIED INGREDIENT
     Indication: DRY SKIN PROPHYLAXIS
  2. MOISTURIZER WITH SUNSCREEN [Concomitant]
     Indication: PRODUCT USED FOR UNKNOWN INDICATION
  3. PROACTIV UNSPECIFIED [Concomitant]
     Indication: PRODUCT USED FOR UNKNOWN INDICATION
  4. DIFFERIN GEL [Suspect]
     Active Substance: ADAPALENE
     Indication: ACNE
     Dosage: 0.1%
     Route: 061
  5. BIRTH CONTROL [Concomitant]
     Active Substance: UNSPECIFIED INGREDIENT
     Indication: CONTRACEPTION
  6. NULL [Concomitant]
     Indication: HYPERTHYROIDISM

REACTIONS (4)
  - Dry skin [Recovered/Resolved]
  - Skin tightness [Recovered/Resolved]
  - Acne [Recovering/Resolving]
  - Skin burning sensation [Not Recovered/Not Resolved]
